FAERS Safety Report 6368605-9 (Version None)
Quarter: 2009Q3

REPORT INFORMATION
  Report Type: 
  Country: None (occurrence: None)
  Receive Date: 20090916
  Receipt Date: 20090904
  Transmission Date: 20100115
  Serious: Yes (Other)
  Sender: FDA-Public Use
  Company Number: PAR_03176_2009

PATIENT
  Age: 82 Year
  Sex: Female

DRUGS (2)
  1. MECLIZINE HCL [Suspect]
     Indication: DIZZINESS
     Dosage: (25 MG BID ORAL)
     Route: 048
  2. NUMEROUS OTHER MEDICATIONS [Concomitant]

REACTIONS (1)
  - BLOOD POTASSIUM INCREASED [None]
